FAERS Safety Report 17404760 (Version 1)
Quarter: 2020Q1

REPORT INFORMATION
  Report Type: Spontaneous
  Country: US (occurrence: US)
  Receive Date: 20200211
  Receipt Date: 20200211
  Transmission Date: 20200409
  Serious: No
  Sender: FDA-Public Use
  Company Number: US-PURDUE-USA-2019-0148013

PATIENT
  Sex: Male
  Weight: 66.67 kg

DRUGS (2)
  1. BUTRANS [Suspect]
     Active Substance: BUPRENORPHINE
     Dosage: 15 MCG/HR, WEEKLY
     Route: 062
  2. BUTRANS [Suspect]
     Active Substance: BUPRENORPHINE
     Indication: ABDOMINAL DISCOMFORT
     Dosage: 15 MCG/HR, WEEKLY
     Route: 062
     Dates: start: 2012

REACTIONS (7)
  - Pain [Unknown]
  - Cardiac disorder [Unknown]
  - Oral discomfort [Not Recovered/Not Resolved]
  - Nervousness [Unknown]
  - Dyspnoea [Unknown]
  - Tongue discomfort [Not Recovered/Not Resolved]
  - Unevaluable event [Unknown]
